FAERS Safety Report 4897776-6 (Version None)
Quarter: 2006Q1

REPORT INFORMATION
  Report Type: 
  Country: None (occurrence: None)
  Receive Date: 20060130
  Receipt Date: 20060130
  Transmission Date: 20060701
  Serious: No
  Sender: FDA-Public Use
  Company Number: None

PATIENT

DRUGS (2)
  1. COREG [Suspect]
     Indication: CARDIAC FAILURE CONGESTIVE
     Dosage: 25 MG BID PO
     Route: 048
  2. COREG [Suspect]
     Indication: ISCHAEMIC CARDIOMYOPATHY
     Dosage: 25 MG BID PO
     Route: 048

REACTIONS (1)
  - DRUG DOSE OMISSION [None]
